FAERS Safety Report 10759127 (Version 2)
Quarter: 2015Q1

REPORT INFORMATION
  Report Type: Spontaneous
  Country: US (occurrence: US)
  Receive Date: 20150203
  Receipt Date: 20150205
  Transmission Date: 20150721
  Serious: Yes (Other)
  Sender: FDA-Public Use
  Company Number: US-TEVA-538216USA

PATIENT
  Age: 22 Year
  Sex: Female
  Weight: 78.54 kg

DRUGS (1)
  1. PARAGARD T 380A [Suspect]
     Active Substance: COPPER
     Indication: CONTRACEPTION
     Route: 015
     Dates: start: 2011, end: 20150122

REACTIONS (4)
  - Muscle spasms [Not Recovered/Not Resolved]
  - Device dislocation [Recovered/Resolved]
  - Device breakage [Recovered/Resolved]
  - Vaginal haemorrhage [Recovered/Resolved]

NARRATIVE: CASE EVENT DATE: 20141218
